FAERS Safety Report 6077080-3 (Version None)
Quarter: 2009Q1

REPORT INFORMATION
  Report Type: 
  Country: None (occurrence: None)
  Receive Date: 20090211
  Receipt Date: 20090211
  Transmission Date: 20090719
  Serious: Yes (Life-Threatening, Other)
  Sender: FDA-Public Use
  Company Number: None

PATIENT
  Age: 39 Year
  Sex: Female
  Weight: 72.5755 kg

DRUGS (2)
  1. KLONOPIN [Suspect]
     Indication: ANXIETY
     Dosage: PO  (CAN NOT STOP WITHDR)
     Route: 048
     Dates: start: 20080110, end: 20080210
  2. KLONOPIN [Suspect]
     Indication: DEPRESSION
     Dosage: PO  (CAN NOT STOP WITHDR)
     Route: 048
     Dates: start: 20080110, end: 20080210

REACTIONS (13)
  - ANXIETY [None]
  - CONVERSION DISORDER [None]
  - CRYING [None]
  - DEPRESSION [None]
  - DISTURBANCE IN ATTENTION [None]
  - DRUG DEPENDENCE [None]
  - FATIGUE [None]
  - FEELING ABNORMAL [None]
  - HYPERHIDROSIS [None]
  - INSOMNIA [None]
  - MEMORY IMPAIRMENT [None]
  - NIGHTMARE [None]
  - SUICIDAL IDEATION [None]
